FAERS Safety Report 4578654-9 (Version None)
Quarter: 2005Q1

REPORT INFORMATION
  Report Type: 
  Country: None (occurrence: None)
  Receive Date: 20050209
  Receipt Date: 20050126
  Transmission Date: 20050727
  Serious: Yes (Death, Hospitalization)
  Sender: FDA-Public Use
  Company Number: 2005RR-00437

PATIENT
  Age: 24 Year
  Sex: Female

DRUGS (2)
  1. CODEINE PHOSPHATE TABLETS BP (CODEINE PHOSPHATE) TABLET [Suspect]
     Dosage: 40 , SINGLE
  2. PARACETAMOL (PARACETAMOL) TABLET [Suspect]
     Dosage: 20 G, SINGLE, ORAL
     Route: 048

REACTIONS (7)
  - ACCIDENTAL OVERDOSE [None]
  - CARDIAC ARREST [None]
  - CARDIAC DEATH [None]
  - ENCEPHALOPATHY [None]
  - HEPATIC FAILURE [None]
  - OLIGURIA [None]
  - PUPIL FIXED [None]
